FAERS Safety Report 7275243-2 (Version None)
Quarter: 2011Q1

REPORT INFORMATION
  Report Type: 
  Country: None (occurrence: None)
  Receive Date: 20110131
  Receipt Date: 20110114
  Transmission Date: 20110831
  Serious: Yes (Death)
  Sender: FDA-Public Use
  Company Number: 1000018426

PATIENT
  Age: 35 Year
  Sex: Male

DRUGS (6)
  1. CITALOPRAM HYDROBROMIDE [Suspect]
  2. COLCHICINE [Suspect]
  3. ALLOPURINOL [Suspect]
  4. ACETAMINOPHEN [Suspect]
  5. AMLODIPINE [Suspect]
  6. LISINOPRIL [Suspect]

REACTIONS (16)
  - HYPOXIA [None]
  - HYPERGLYCAEMIA [None]
  - ELECTROCARDIOGRAM QRS COMPLEX PROLONGED [None]
  - LOSS OF CONSCIOUSNESS [None]
  - ASPARTATE AMINOTRANSFERASE INCREASED [None]
  - RENAL FAILURE [None]
  - ALANINE AMINOTRANSFERASE INCREASED [None]
  - RHABDOMYOLYSIS [None]
  - ATRIOVENTRICULAR BLOCK [None]
  - HYPERKALAEMIA [None]
  - MULTIPLE DRUG OVERDOSE INTENTIONAL [None]
  - APNOEA [None]
  - DIALYSIS [None]
  - COMPLETED SUICIDE [None]
  - SHOCK [None]
  - HEART RATE INCREASED [None]
